FAERS Safety Report 17632058 (Version 4)
Quarter: 2021Q1

REPORT INFORMATION
  Report Type: Report from Study
  Country: None (occurrence: US)
  Receive Date: 20200406
  Receipt Date: 20210318
  Transmission Date: 20210419
  Serious: Yes (Other)
  Sender: FDA-Public Use
  Company Number: US-ABBVIE-20P-163-3241077-00

PATIENT
  Age: 72 Year
  Sex: Male

DRUGS (5)
  1. IMBRUVICA [Suspect]
     Active Substance: IBRUTINIB
     Indication: CHRONIC LYMPHOCYTIC LEUKAEMIA
     Route: 048
     Dates: start: 20200103
  2. IMBRUVICA [Suspect]
     Active Substance: IBRUTINIB
     Route: 048
     Dates: start: 202001
  3. IMBRUVICA [Suspect]
     Active Substance: IBRUTINIB
     Route: 048
     Dates: start: 202001
  4. IMBRUVICA [Suspect]
     Active Substance: IBRUTINIB
     Route: 048
     Dates: start: 20200104
  5. IMBRUVICA [Suspect]
     Active Substance: IBRUTINIB
     Route: 048

REACTIONS (13)
  - Bone pain [Unknown]
  - Abdominal discomfort [Unknown]
  - Myalgia [Unknown]
  - Malaise [Unknown]
  - Shoulder arthroplasty [Not Recovered/Not Resolved]
  - Arthralgia [Unknown]
  - Procedural pain [Not Recovered/Not Resolved]
  - Diarrhoea [Unknown]
  - Spinal operation [Not Recovered/Not Resolved]
  - Pain [Unknown]
  - Headache [Not Recovered/Not Resolved]
  - Back pain [Unknown]
  - Fatigue [Unknown]

NARRATIVE: CASE EVENT DATE: 202001
